FAERS Safety Report 11069454 (Version 1)
Quarter: 2015Q2

REPORT INFORMATION
  Report Type: Spontaneous
  Country: SE (occurrence: SE)
  Receive Date: 20150427
  Receipt Date: 20150427
  Transmission Date: 20150821
  Serious: Yes (Disabling)
  Sender: FDA-Public Use
  Company Number: SE-TEVA-556807ISR

PATIENT
  Age: 54 Year
  Sex: Female

DRUGS (1)
  1. MIRTAZAPINE. [Suspect]
     Active Substance: MIRTAZAPINE

REACTIONS (6)
  - Joint swelling [Not Recovered/Not Resolved]
  - Blood glucose increased [Not Recovered/Not Resolved]
  - Crying [Not Recovered/Not Resolved]
  - Feeling of despair [Not Recovered/Not Resolved]
  - Mood swings [Not Recovered/Not Resolved]
  - Dry mouth [Not Recovered/Not Resolved]
